FAERS Safety Report 4426097-0 (Version None)
Quarter: 2004Q3

REPORT INFORMATION
  Report Type: 
  Country: None (occurrence: None)
  Receive Date: 20040811
  Receipt Date: 20040803
  Transmission Date: 20050211
  Serious: Yes (Other)
  Sender: FDA-Public Use
  Company Number: GBWYE697408APR04

PATIENT
  Age: 44 Year
  Sex: Male

DRUGS (7)
  1. EFFEXOR [Suspect]
     Indication: DEPRESSIVE SYMPTOM
     Dosage: SEE IMAGE
     Route: 048
  2. EFFEXOR [Suspect]
     Indication: GENERALISED ANXIETY DISORDER
     Dosage: SEE IMAGE
     Route: 048
  3. CARBAMAZEPINE [Concomitant]
  4. MIRTAZAPINE [Concomitant]
  5. ZOPICLONE (ZOPICLONE) [Concomitant]
  6. RISPERDAL [Concomitant]
  7. ACAMPROSATE (ACAMPROSATE) [Concomitant]

REACTIONS (6)
  - ABNORMAL BEHAVIOUR [None]
  - AGGRESSION [None]
  - ANGER [None]
  - CONDITION AGGRAVATED [None]
  - IMPULSE-CONTROL DISORDER [None]
  - IRRITABILITY [None]
